FAERS Safety Report 5295101-2 (Version None)
Quarter: 2007Q1

REPORT INFORMATION
  Report Type: 
  Country: None (occurrence: None)
  Receive Date: 20070201
  Receipt Date: 20061022
  Transmission Date: 20070707
  Serious: No
  Sender: FDA-Public Use
  Company Number: 2006PV023673

PATIENT
  Age: 61 Year
  Sex: Female
  Weight: 90.7194 kg

DRUGS (2)
  1. BYETTA [Suspect]
     Indication: DIABETES MELLITUS NON-INSULIN-DEPENDENT
     Dosage: 5 MCG;BID;SC
     Route: 058
     Dates: start: 20060901
  2. METFORMIN HCL [Concomitant]

REACTIONS (7)
  - ERUCTATION [None]
  - FLATULENCE [None]
  - HEADACHE [None]
  - NAUSEA [None]
  - SINUS CONGESTION [None]
  - SINUSITIS [None]
  - WEIGHT DECREASED [None]
